FAERS Safety Report 8051395-1 (Version None)
Quarter: 2012Q1

REPORT INFORMATION
  Report Type: 
  Country: None (occurrence: None)
  Receive Date: 20120117
  Receipt Date: 20101231
  Transmission Date: 20120608
  Serious: Yes (Death)
  Sender: FDA-Public Use
  Company Number: US-ROCHE-1028694

PATIENT
  Sex: Male
  Weight: 78.542 kg

DRUGS (6)
  1. IRINOTECAN HCL [Concomitant]
     Indication: COLON CANCER
     Route: 042
     Dates: start: 20090506, end: 20090908
  2. FLUOROURACIL [Concomitant]
     Route: 042
     Dates: start: 20090506, end: 20090910
  3. AVASTIN [Suspect]
     Indication: COLON CANCER
     Route: 042
     Dates: start: 20090506, end: 20090908
  4. LEUCOVORIN CALCIUM [Concomitant]
     Indication: COLON CANCER
     Route: 042
     Dates: start: 20090506, end: 20090908
  5. FLUOROURACIL [Concomitant]
     Indication: COLON CANCER
     Route: 042
     Dates: start: 20090506, end: 20090908
  6. OXYCODONE HCL [Concomitant]
     Indication: PAIN
     Route: 048
     Dates: start: 20091020

REACTIONS (1)
  - COLON CANCER METASTATIC [None]
